FAERS Safety Report 9686377 (Version 1)
Quarter: 2013Q4

REPORT INFORMATION
  Report Type: Spontaneous
  Country: BR (occurrence: BR)
  Receive Date: 20131113
  Receipt Date: 20131113
  Transmission Date: 20140711
  Serious: Yes (Other)
  Sender: FDA-Public Use
  Company Number: BR-BRISTOL-MYERS SQUIBB COMPANY-19803808

PATIENT
  Age: 61 Year
  Sex: Female

DRUGS (4)
  1. GLIFAGE XR [Suspect]
     Indication: DIABETES MELLITUS MANAGEMENT
     Dates: start: 20120909
  2. COVERSYL PLUS [Concomitant]
  3. SOTACOR [Concomitant]
  4. FRONTAL [Concomitant]

REACTIONS (8)
  - Gallbladder disorder [Recovered/Resolved]
  - Coeliac disease [Recovered/Resolved]
  - Arthropathy [Recovered/Resolved]
  - Hepatic steatosis [Not Recovered/Not Resolved]
  - Blood cholesterol increased [Recovered/Resolved]
  - Nausea [Recovered/Resolved]
  - Vomiting [Recovered/Resolved]
  - Diarrhoea [Recovered/Resolved]
